FAERS Safety Report 14692168 (Version 1)
Quarter: 2018Q1

REPORT INFORMATION
  Report Type: Spontaneous
  Country: FR (occurrence: FR)
  Receive Date: 20180329
  Receipt Date: 20180329
  Transmission Date: 20180509
  Serious: Yes (Other)
  Sender: FDA-Public Use
  Company Number: FR-MERCK KGAA-2044735

PATIENT
  Age: 49 Year
  Sex: Female

DRUGS (1)
  1. NOVOTHYROX [Suspect]
     Active Substance: LEVOTHYROXINE SODIUM
     Indication: PRODUCT USED FOR UNKNOWN INDICATION
     Dates: start: 201703

REACTIONS (22)
  - Insomnia [None]
  - Palpitations [None]
  - Impaired driving ability [None]
  - Hot flush [None]
  - Headache [None]
  - Social avoidant behaviour [None]
  - Tri-iodothyronine decreased [None]
  - Weight increased [None]
  - Migraine [None]
  - Depressed mood [None]
  - Dizziness [None]
  - Anxiety [None]
  - Myalgia [None]
  - Blood thyroid stimulating hormone increased [None]
  - Dyspnoea [None]
  - Balance disorder [None]
  - Depression [None]
  - Amnesia [None]
  - Fatigue [None]
  - Loss of personal independence in daily activities [None]
  - Loss of libido [None]
  - Thyroxine abnormal [None]

NARRATIVE: CASE EVENT DATE: 2017
